FAERS Safety Report 15410102 (Version 2)
Quarter: 2018Q4

REPORT INFORMATION
  Report Type: Spontaneous
  Country: PT (occurrence: PT)
  Receive Date: 20180921
  Receipt Date: 20181101
  Transmission Date: 20190204
  Serious: Yes (Other)
  Sender: FDA-Public Use
  Company Number: PHHY2018PT100716

PATIENT
  Age: 38 Year
  Sex: Female

DRUGS (3)
  1. AZATHIOPRINE. [Suspect]
     Active Substance: AZATHIOPRINE
     Indication: MYASTHENIA GRAVIS
     Dosage: UNK
     Route: 065
  2. PREDNISONE. [Suspect]
     Active Substance: PREDNISONE
     Indication: MYASTHENIA GRAVIS
     Dosage: UNK
     Route: 065
  3. RITUXIMAB. [Suspect]
     Active Substance: RITUXIMAB
     Indication: MYASTHENIA GRAVIS
     Dosage: 1000 MG, UNK (TWO INFUSIONS GIVEN 15 DAYS APART)
     Route: 042

REACTIONS (6)
  - Flushing [Recovered/Resolved]
  - Chills [Recovered/Resolved]
  - Haemophagocytic lymphohistiocytosis [Unknown]
  - Off label use [Unknown]
  - Hypotension [Recovered/Resolved]
  - Intentional product use issue [Unknown]
